FAERS Safety Report 7867008-5 (Version None)
Quarter: 2011Q4

REPORT INFORMATION
  Report Type: 
  Country: None (occurrence: None)
  Receive Date: 20111028
  Receipt Date: 20111017
  Transmission Date: 20120403
  Serious: No
  Sender: FDA-Public Use
  Company Number: US-JNJFOC-20111008085

PATIENT
  Age: 40 Year
  Sex: Male

DRUGS (4)
  1. LAMICTAL [Concomitant]
     Indication: CONVULSION
     Route: 065
  2. INVEGA SUSTENNA [Suspect]
     Route: 030
  3. INVEGA SUSTENNA [Suspect]
     Route: 030
     Dates: start: 20110901
  4. INVEGA SUSTENNA [Suspect]
     Indication: PSYCHOTIC DISORDER
     Route: 030
     Dates: start: 20110301

REACTIONS (1)
  - THERAPEUTIC RESPONSE DECREASED [None]
